FAERS Safety Report 9163867 (Version 1)
Quarter: 2013Q1

REPORT INFORMATION
  Report Type: Report from Study
  Country: US (occurrence: US)
  Receive Date: 20130314
  Receipt Date: 20130314
  Transmission Date: 20140127
  Serious: Yes (Hospitalization, Other)
  Sender: FDA-Public Use
  Company Number: US-ASTRAZENECA-2012SE86216

PATIENT
  Age: 57 Year
  Sex: Female
  Weight: 81.2 kg

DRUGS (23)
  1. NEXIUM [Suspect]
     Route: 048
  2. OMEPRAZOLE [Suspect]
     Route: 048
  3. ATENOLOL [Suspect]
     Route: 048
  4. TAXOTERE [Suspect]
     Route: 065
  5. CYTOXAN [Suspect]
     Route: 065
  6. NEUPOGEN [Suspect]
     Route: 065
  7. ADVAIR DISKUS [Concomitant]
     Dosage: 250 MCG -50  MCG ONE PUFF BID
     Route: 055
  8. TRILIPIX [Concomitant]
     Route: 048
  9. AMLODIPINE [Concomitant]
     Route: 048
  10. NICOTINE [Concomitant]
     Dosage: 21 MG/24 HOUR TRANSDERMAL FILM
     Route: 061
  11. BENICAR [Concomitant]
     Route: 048
  12. EFFEXOR [Concomitant]
     Route: 048
  13. FISH OIL [Concomitant]
     Route: 048
  14. LEVAQUIN [Concomitant]
     Dosage: 1 TAB BY MOUTH Q 24 H FOR ONE DAY
     Route: 048
  15. LIPITOR [Concomitant]
     Route: 048
  16. PLAVIX [Concomitant]
     Route: 048
  17. XANAX [Concomitant]
     Route: 048
  18. XANAX [Concomitant]
     Route: 048
  19. ASPIRIN [Concomitant]
     Route: 048
  20. CLONIDINE [Concomitant]
     Route: 048
  21. DOXAZOSIN [Concomitant]
     Route: 048
  22. NYSTATIN [Concomitant]
     Dosage: 5 ML EVERY SIX HR SWISH AND SPIT FOR SEVEN DAYS
     Route: 048
  23. PROVENTIL [Concomitant]
     Indication: WHEEZING
     Dosage: HFA 90 MCG/INH INHALATION AEROSOL ONE OR TWO PUFF INHALATION Q 4H
     Route: 055

REACTIONS (30)
  - Invasive ductal breast carcinoma [Unknown]
  - Systemic inflammatory response syndrome [Recovered/Resolved]
  - Diarrhoea [Unknown]
  - Dehydration [Unknown]
  - Asthenia [Unknown]
  - Anaemia [Unknown]
  - Leukopenia [Unknown]
  - Leukocytosis [Unknown]
  - Musculoskeletal chest pain [Unknown]
  - Hypertension [Unknown]
  - Hypercholesterolaemia [Unknown]
  - Anxiety [Unknown]
  - Depression [Unknown]
  - Coronary artery disease [Unknown]
  - Insomnia [Unknown]
  - Hyponatraemia [Recovered/Resolved]
  - Fibroadenoma of breast [Unknown]
  - Breast cyst [Unknown]
  - Nasal cavity cancer [Unknown]
  - Hypotension [Unknown]
  - Chronic sinusitis [Unknown]
  - Nasal septum deviation [Unknown]
  - Dyspnoea [Unknown]
  - Oropharyngeal pain [Unknown]
  - Upper-airway cough syndrome [Unknown]
  - Oedema peripheral [Unknown]
  - Abdominal pain [Unknown]
  - Musculoskeletal stiffness [Unknown]
  - Back pain [Unknown]
  - Drug dose omission [Unknown]
